FAERS Safety Report 11172475 (Version 1)
Quarter: 2015Q2

REPORT INFORMATION
  Report Type: Spontaneous
  Country: US (occurrence: US)
  Receive Date: 20150608
  Receipt Date: 20150608
  Transmission Date: 20150821
  Serious: No
  Sender: FDA-Public Use
  Company Number: US-HORIZON-ACT-0087-2015

PATIENT
  Age: 54 Year
  Sex: Male

DRUGS (1)
  1. ACTIMMUNE [Suspect]
     Active Substance: INTERFERON GAMMA-1B
     Indication: MYCOSIS FUNGOIDES
     Route: 058
     Dates: start: 20150106

REACTIONS (2)
  - Injection site haemorrhage [Unknown]
  - Off label use [Unknown]
